FAERS Safety Report 8819883 (Version 1)
Quarter: 2012Q4

REPORT INFORMATION
  Report Type: 
  Country: ES (occurrence: ES)
  Receive Date: 20121001
  Receipt Date: 20121001
  Transmission Date: 20130627
  Serious: Yes (Hospitalization)
  Sender: FDA-Public Use
  Company Number: ES-ABBOTT-12P-144-0989688-00

PATIENT
  Age: 87 Year
  Sex: Female

DRUGS (6)
  1. .ALPHA.-AMYLASE A TYPE-1/2 [Suspect]
     Indication: PRODUCT USED FOR UNKNOWN INDICATION
     Route: 048
     Dates: start: 20100101, end: 20101024
  2. AKINETON [Suspect]
     Dosage: 20 tablets
     Route: 048
     Dates: start: 20101024, end: 20101024
  3. LANTANON [Suspect]
     Indication: PRODUCT USED FOR UNKNOWN INDICATION
     Route: 048
     Dates: start: 20100101, end: 20101024
  4. LANTANON [Suspect]
     Dosage: 30 tablets
     Route: 048
     Dates: start: 20101024, end: 20101024
  5. PAUSEDAL [Suspect]
     Indication: PRODUCT USED FOR UNKNOWN INDICATION
     Route: 048
     Dates: start: 20100101, end: 20101024
  6. PAUSEDAL [Suspect]
     Dosage: 30 tablets
     Route: 048
     Dates: start: 20101024, end: 20101024

REACTIONS (1)
  - Cognitive disorder [Recovered/Resolved]
